FAERS Safety Report 9490426 (Version 1)
Quarter: 2013Q3

REPORT INFORMATION
  Report Type: Spontaneous
  Country: US (occurrence: None)
  Receive Date: 20130827
  Receipt Date: 20130827
  Transmission Date: 20140515
  Serious: Yes (Other)
  Sender: FDA-Public Use
  Company Number: None

PATIENT
  Age: 69 Year
  Sex: Female
  Weight: 80.74 kg

DRUGS (1)
  1. PREDNISONE [Suspect]
     Indication: AUTOIMMUNE DISORDER
     Dosage: 4 TABLETS  ONCE DAILY  MOUTH?STILL USING / DOSAGE REDUCED
     Route: 048
     Dates: start: 20130804

REACTIONS (1)
  - Blood glucose increased [None]
